FAERS Safety Report 4774398-9 (Version None)
Quarter: 2005Q3

REPORT INFORMATION
  Report Type: 
  Country: None (occurrence: None)
  Receive Date: 20050919
  Receipt Date: 20050121
  Transmission Date: 20060218
  Serious: Yes (Other)
  Sender: FDA-Public Use
  Company Number: HQWYE845525JAN05

PATIENT

DRUGS (1)
  1. ADVIL [Suspect]
     Indication: DRUG USE FOR UNKNOWN INDICATION
     Dosage: APPROXIMATELY 15 LIQUI-GELS DAILY, ORAL
     Route: 048

REACTIONS (2)
  - GASTRIC HAEMORRHAGE [None]
  - OVERDOSE [None]
